FAERS Safety Report 10950332 (Version 1)
Quarter: 2015Q1

REPORT INFORMATION
  Report Type: Spontaneous
  Country: US (occurrence: None)
  Receive Date: 20150323
  Receipt Date: 20150323
  Transmission Date: 20150721
  Serious: Yes (Disabling)
  Sender: FDA-Public Use
  Company Number: None

PATIENT
  Age: 66 Year
  Sex: Female
  Weight: 127.01 kg

DRUGS (12)
  1. CPAP MACHINE [Concomitant]
  2. LISINOPRIL. [Concomitant]
     Active Substance: LISINOPRIL
  3. LOVASTATIN. [Concomitant]
     Active Substance: LOVASTATIN
  4. ASPIRIN. [Concomitant]
     Active Substance: ASPIRIN
  5. VITAMIN B12 SHOTS [Concomitant]
  6. TROPSIUM [Concomitant]
  7. SERTRALINE [Concomitant]
     Active Substance: SERTRALINE HYDROCHLORIDE
  8. SLEEP CAPSULE [Concomitant]
  9. VIMOVO [Suspect]
     Active Substance: ESOMEPRAZOLE MAGNESIUM\NAPROXEN
     Indication: ARTHRITIS
     Dosage: 1
     Route: 048
  10. VOMOVO [Concomitant]
  11. CENTRUM SILVER MULTI-VITAMIN [Concomitant]
  12. VITAMIN D [Concomitant]
     Active Substance: CHOLECALCIFEROL

REACTIONS (6)
  - Discomfort [None]
  - Peripheral swelling [None]
  - Nail discolouration [None]
  - Sleep disorder [None]
  - Muscle tightness [None]
  - Erythema [None]

NARRATIVE: CASE EVENT DATE: 20150301
